FAERS Safety Report 8369566-3 (Version None)
Quarter: 2012Q2

REPORT INFORMATION
  Report Type: 
  Country: None (occurrence: None)
  Receive Date: 20120517
  Receipt Date: 20120517
  Transmission Date: 20120825
  Serious: No
  Sender: FDA-Public Use
  Company Number: None

PATIENT
  Sex: Female
  Weight: 120.3847 kg

DRUGS (1)
  1. REMICADE [Suspect]
     Indication: RHEUMATOID ARTHRITIS
     Dosage: 1000 MG IV Q 4 WKS

REACTIONS (5)
  - URTICARIA [None]
  - CHEST DISCOMFORT [None]
  - PRURITUS [None]
  - PARAESTHESIA ORAL [None]
  - RASH [None]
